FAERS Safety Report 8487343-X (Version None)
Quarter: 2012Q3

REPORT INFORMATION
  Report Type: 
  Country: None (occurrence: None)
  Receive Date: 20120705
  Receipt Date: 20120628
  Transmission Date: 20120928
  Serious: Yes (Other)
  Sender: FDA-Public Use
  Company Number: US-AMGEN-USASP2012040555

PATIENT
  Age: 58 Year
  Sex: Male

DRUGS (5)
  1. NEUPOGEN [Suspect]
     Indication: NEUTROPENIA
     Dates: start: 20120510
  2. VICTRELIS [Concomitant]
     Indication: HEPATITIS C
  3. NEUPOGEN [Suspect]
     Indication: HEPATITIS C
  4. PEGASYS [Concomitant]
     Indication: HEPATITIS C
  5. RIBAVIRIN [Concomitant]
     Indication: HEPATITIS C

REACTIONS (1)
  - WHITE BLOOD CELL DISORDER [None]
